FAERS Safety Report 17398609 (Version 2)
Quarter: 2020Q1

REPORT INFORMATION
  Report Type: Spontaneous
  Country: TR (occurrence: TR)
  Receive Date: 20200210
  Receipt Date: 20200324
  Transmission Date: 20200409
  Serious: Yes (Hospitalization, Other)
  Sender: FDA-Public Use
  Company Number: NVSC2020TR034297

PATIENT
  Age: 40 Year
  Sex: Male

DRUGS (4)
  1. TRILEPTAL [Suspect]
     Active Substance: OXCARBAZEPINE
     Indication: EPILEPSY
     Dosage: 2100 MG, QD (STRENGTH: 600 MG, 1.5 DF IN MORNING AND 2 DF IN EVENING)
     Route: 065
  2. KEPPRA [Concomitant]
     Active Substance: LEVETIRACETAM
     Indication: EPILEPSY
     Dosage: UNK
     Route: 065
  3. TRILEPTAL [Suspect]
     Active Substance: OXCARBAZEPINE
     Dosage: 300 MG, BID
     Route: 065
  4. TRILEPTAL [Suspect]
     Active Substance: OXCARBAZEPINE
     Dosage: 600 MG, UNKNOWN
     Route: 065

REACTIONS (5)
  - Visual impairment [Unknown]
  - Syncope [Unknown]
  - Loss of consciousness [Unknown]
  - Epilepsy [Unknown]
  - Drug ineffective [Unknown]
